FAERS Safety Report 5750428-2 (Version None)
Quarter: 2008Q2

REPORT INFORMATION
  Report Type: 
  Country: None (occurrence: None)
  Receive Date: 20080528
  Receipt Date: 20080430
  Transmission Date: 20081010
  Serious: Yes (Death, Hospitalization)
  Sender: FDA-Public Use
  Company Number: MX-JNJFOC-20080500967

PATIENT
  Age: 47 Year
  Sex: Male
  Weight: 90 kg

DRUGS (8)
  1. REOPRO [Suspect]
     Dosage: 17 ML/HR, THEN INCREASING TO 24 ML/HR UP TO 28 ML/HR
     Route: 042
  2. REOPRO [Suspect]
     Dosage: 22 ML/HR
     Route: 042
  3. REOPRO [Suspect]
     Dosage: 17 ML/HR
     Route: 042
  4. REOPRO [Suspect]
     Indication: DRUG USE FOR UNKNOWN INDICATION
     Route: 042
  5. HEPARIN [Concomitant]
  6. HEPARIN [Concomitant]
  7. FENTANYL-100 [Concomitant]
  8. MIDAZOLAM HCL [Concomitant]

REACTIONS (5)
  - DRUG INEFFECTIVE [None]
  - MOUTH HAEMORRHAGE [None]
  - MUSCULOSKELETAL CHEST PAIN [None]
  - MYOCARDIAL INFARCTION [None]
  - PHARMACEUTICAL PRODUCT COUNTERFEIT [None]
